FAERS Safety Report 9843346 (Version 1)
Quarter: 2013Q4

REPORT INFORMATION
  Report Type: Spontaneous
  Country: US (occurrence: None)
  Receive Date: 20131223
  Receipt Date: 20131223
  Transmission Date: 20140711
  Serious: No
  Sender: FDA-Public Use
  Company Number: 219187LEO

PATIENT
  Sex: Female

DRUGS (5)
  1. PICATO (0.015 %, GEL) [Suspect]
     Indication: ACTINIC KERATOSIS
     Dates: start: 20120923, end: 20120925
  2. LOSARTAN (LOSARTAN) [Suspect]
  3. LEVOTHYROXINE (LEVOTHYROXINE) [Concomitant]
  4. LANSOPROZOLE (LANSOPRAZOLE) [Concomitant]
  5. SIMVASTATIN (SIMVASATIN) [Concomitant]

REACTIONS (2)
  - Erythema [None]
  - Pruritus [None]
